FAERS Safety Report 21693654 (Version 1)
Quarter: 2022Q4

REPORT INFORMATION
  Report Type: Report from Study
  Country: AU (occurrence: AU)
  Receive Date: 20221207
  Receipt Date: 20221207
  Transmission Date: 20230112
  Serious: Yes (Hospitalization, Other)
  Sender: FDA-Public Use
  Company Number: AU-002147023-NVSC2019AU073138

PATIENT
  Age: 51 Year
  Sex: Male
  Weight: 88.2 kg

DRUGS (43)
  1. TISAGENLECLEUCEL [Suspect]
     Active Substance: TISAGENLECLEUCEL
     Indication: B-cell lymphoma
     Dosage: NO TREATMENT
     Route: 065
  2. TISAGENLECLEUCEL [Suspect]
     Active Substance: TISAGENLECLEUCEL
     Dosage: 1.5X10E8 CELLS
     Route: 042
     Dates: start: 20200116
  3. RITUXIMAB [Suspect]
     Active Substance: RITUXIMAB
     Indication: B-cell lymphoma
     Dosage: 740 MG, ONCE
     Route: 041
     Dates: start: 20191203
  4. ETOPOSIDE [Suspect]
     Active Substance: ETOPOSIDE
     Indication: B-cell lymphoma
     Dosage: 198 MG, ONCE
     Route: 042
     Dates: start: 20191203
  5. IFOSFAMIDE [Suspect]
     Active Substance: IFOSFAMIDE
     Indication: B-cell lymphoma
     Dosage: 9840 MG, CONTINUOS INFUSION 24 H
     Route: 042
     Dates: start: 20191204
  6. MESNA [Suspect]
     Active Substance: MESNA
     Indication: B-cell lymphoma
     Dosage: 9900 MG, CONTINUOS INFUSION 24 H
     Route: 042
     Dates: start: 20191204
  7. DEXAMETHASONE [Concomitant]
     Active Substance: DEXAMETHASONE
     Indication: Premedication
     Dosage: UNK
     Route: 065
     Dates: start: 20191203, end: 20191205
  8. DEXAMETHASONE [Concomitant]
     Active Substance: DEXAMETHASONE
     Indication: Therapeutic procedure
     Dosage: UNK
     Route: 065
     Dates: start: 20191219, end: 20191221
  9. DEXAMETHASONE [Concomitant]
     Active Substance: DEXAMETHASONE
     Dosage: UNK
     Route: 065
     Dates: start: 20191222, end: 20191223
  10. ENTECAVIR [Concomitant]
     Active Substance: ENTECAVIR
     Indication: Hepatitis B core antibody positive
     Dosage: UNK
     Route: 065
     Dates: start: 201805, end: 2020
  11. LACTULOSE [Concomitant]
     Active Substance: LACTULOSE
     Indication: Faeces soft
     Dosage: UNK
     Route: 065
     Dates: start: 20191205, end: 20191205
  12. METHYL SALICYLATE\PEPPERMINT OIL\SODIUM BICARBONATE\SODIUM CHLORIDE [Concomitant]
     Active Substance: METHYL SALICYLATE\PEPPERMINT OIL\SODIUM BICARBONATE\SODIUM CHLORIDE
     Indication: Prophylaxis
     Dosage: UNK
     Route: 065
     Dates: start: 20191204, end: 20191206
  13. ENOXAPARIN [Concomitant]
     Active Substance: ENOXAPARIN
     Indication: Thrombosis prophylaxis
     Dosage: UNK
     Route: 065
     Dates: start: 20191203, end: 20191203
  14. ENOXAPARIN [Concomitant]
     Active Substance: ENOXAPARIN
     Dosage: UNK
     Route: 065
     Dates: start: 20191220, end: 20191221
  15. ENOXAPARIN [Concomitant]
     Active Substance: ENOXAPARIN
     Dosage: UNK
     Route: 065
     Dates: start: 20200116, end: 20200125
  16. NETUPITANT\PALONOSETRON [Concomitant]
     Active Substance: NETUPITANT\PALONOSETRON
     Indication: Premedication
     Dosage: UNK
     Route: 065
     Dates: start: 20191204, end: 20191204
  17. NETUPITANT\PALONOSETRON [Concomitant]
     Active Substance: NETUPITANT\PALONOSETRON
     Dosage: UNK
     Route: 065
     Dates: start: 20191220, end: 20191220
  18. ACETAMINOPHEN [Concomitant]
     Active Substance: ACETAMINOPHEN
     Indication: Premedication
     Dosage: UNK
     Route: 065
     Dates: start: 20191203, end: 20191203
  19. ACETAMINOPHEN [Concomitant]
     Active Substance: ACETAMINOPHEN
     Indication: Pain
     Dosage: UNK
     Route: 065
     Dates: start: 20191219, end: 20191219
  20. ACETAMINOPHEN [Concomitant]
     Active Substance: ACETAMINOPHEN
     Indication: Cytokine release syndrome
     Dosage: UNK
     Route: 065
     Dates: start: 20200116, end: 20200116
  21. ACETAMINOPHEN [Concomitant]
     Active Substance: ACETAMINOPHEN
     Dosage: UNK
     Route: 065
     Dates: start: 20200117, end: 20200125
  22. LORATADINE [Concomitant]
     Active Substance: LORATADINE
     Indication: Premedication
     Dosage: UNK
     Route: 065
     Dates: start: 20191203, end: 20191203
  23. LORATADINE [Concomitant]
     Active Substance: LORATADINE
     Dosage: UNK
     Route: 065
     Dates: start: 20191219, end: 20191219
  24. LORATADINE [Concomitant]
     Active Substance: LORATADINE
     Dosage: UNK
     Route: 065
     Dates: start: 20200116, end: 20200116
  25. PANTOPRAZOLE [Concomitant]
     Active Substance: PANTOPRAZOLE
     Indication: Prophylaxis
     Dosage: UNK
     Route: 065
     Dates: start: 201906, end: 2020
  26. ALTEPLASE [Concomitant]
     Active Substance: ALTEPLASE
     Indication: Central venous catheterisation
     Dosage: UNK
     Route: 065
     Dates: start: 20191203, end: 20191203
  27. ALTEPLASE [Concomitant]
     Active Substance: ALTEPLASE
     Dosage: UNK
     Route: 065
     Dates: start: 20200115, end: 20200115
  28. PIPERACILLIN SODIUM\TAZOBACTAM SODIUM [Concomitant]
     Active Substance: PIPERACILLIN SODIUM\TAZOBACTAM SODIUM
     Indication: Cytokine release syndrome
     Dosage: UNK
     Route: 065
     Dates: start: 20200120, end: 20200125
  29. PALONOSETRON [Concomitant]
     Active Substance: PALONOSETRON
     Indication: Premedication
     Dosage: UNK
     Route: 065
     Dates: start: 20200109, end: 20200109
  30. AMOXICILLIN\CLAVULANIC ACID [Concomitant]
     Active Substance: AMOXICILLIN\CLAVULANIC ACID
     Indication: Urinary tract infection
     Dosage: UNK
     Route: 065
     Dates: start: 20200113, end: 20200120
  31. AMOXICILLIN\CLAVULANIC ACID [Concomitant]
     Active Substance: AMOXICILLIN\CLAVULANIC ACID
     Indication: Cytokine release syndrome
     Dosage: UNK
     Route: 065
     Dates: start: 20200125, end: 20200203
  32. SODIUM CHLORIDE [Concomitant]
     Active Substance: SODIUM CHLORIDE
     Indication: Cytokine release syndrome
     Dosage: UNK
     Route: 065
     Dates: start: 20200120, end: 20200120
  33. VALACYCLOVIR [Concomitant]
     Active Substance: VALACYCLOVIR HYDROCHLORIDE
     Indication: Antiviral prophylaxis
     Dosage: UNK
     Route: 065
     Dates: start: 201906, end: 2020
  34. AGOMELATINE [Concomitant]
     Active Substance: AGOMELATINE
     Indication: Anxiety
     Dosage: UNK
     Route: 065
     Dates: start: 201711, end: 2020
  35. SULFAMETHOXAZOLE\TRIMETHOPRIM [Concomitant]
     Active Substance: SULFAMETHOXAZOLE\TRIMETHOPRIM
     Indication: Antibiotic prophylaxis
     Dosage: UNK
     Route: 065
     Dates: start: 20191127, end: 20200214
  36. FLUCONAZOLE [Concomitant]
     Active Substance: FLUCONAZOLE
     Indication: Antifungal prophylaxis
     Dosage: UNK
     Route: 065
     Dates: start: 20191127, end: 2020
  37. ALLOPURINOL [Concomitant]
     Active Substance: ALLOPURINOL
     Indication: Prophylaxis
     Dosage: UNK
     Route: 065
     Dates: start: 20191127, end: 2020
  38. FLUDARABINE [Concomitant]
     Active Substance: FLUDARABINE PHOSPHATE
     Indication: Chemotherapy
     Dosage: 50 MG, ONCE
     Route: 065
     Dates: start: 20200109, end: 20200109
  39. FLUDARABINE [Concomitant]
     Active Substance: FLUDARABINE PHOSPHATE
     Dosage: 50 MG, ONCE
     Route: 065
     Dates: start: 20200110, end: 20200110
  40. FLUDARABINE [Concomitant]
     Active Substance: FLUDARABINE PHOSPHATE
     Dosage: 50 MG, ONCE
     Route: 065
     Dates: start: 20200111, end: 20200111
  41. CYCLOPHOSPHAMIDE [Concomitant]
     Active Substance: CYCLOPHOSPHAMIDE
     Indication: Chemotherapy
     Dosage: 490 MG, ONCE
     Route: 065
     Dates: start: 20200109, end: 20200109
  42. CYCLOPHOSPHAMIDE [Concomitant]
     Active Substance: CYCLOPHOSPHAMIDE
     Dosage: 490 MG, ONCE
     Route: 065
     Dates: start: 20200110, end: 20200110
  43. CYCLOPHOSPHAMIDE [Concomitant]
     Active Substance: CYCLOPHOSPHAMIDE
     Dosage: 490 MG, ONCE
     Route: 065
     Dates: start: 20200111, end: 20200111

REACTIONS (2)
  - Pyrexia [Recovered/Resolved]
  - Pyrexia [Recovered/Resolved]

NARRATIVE: CASE EVENT DATE: 20191215
